FAERS Safety Report 8866051 (Version 8)
Quarter: 2016Q1

REPORT INFORMATION
  Report Type: Spontaneous
  Country: US (occurrence: US)
  Receive Date: 20121025
  Receipt Date: 20160330
  Transmission Date: 20160526
  Serious: Yes (Hospitalization, Other)
  Sender: FDA-Public Use
  Company Number: US-009507513-1210USA010508

PATIENT
  Sex: Male
  Weight: 89.25 kg

DRUGS (1)
  1. PROPECIA [Suspect]
     Active Substance: FINASTERIDE
     Indication: ANDROGENETIC ALOPECIA
     Dosage: 1 MG
     Route: 048
     Dates: start: 19980925, end: 19991115

REACTIONS (22)
  - Emotional distress [Not Recovered/Not Resolved]
  - Erectile dysfunction [Not Recovered/Not Resolved]
  - Penile abscess [Unknown]
  - Peyronie^s disease [Unknown]
  - Upper respiratory tract infection [Unknown]
  - Tendonitis [Unknown]
  - Headache [Unknown]
  - Arthritis [Unknown]
  - Sepsis [Recovering/Resolving]
  - Fatigue [Unknown]
  - Genital herpes [Unknown]
  - Drug ineffective [Unknown]
  - Surgery [Unknown]
  - Cognitive disorder [Not Recovered/Not Resolved]
  - Benign prostatic hyperplasia [Unknown]
  - Snoring [Unknown]
  - Skin injury [Unknown]
  - Sexual dysfunction [Not Recovered/Not Resolved]
  - Libido decreased [Not Recovered/Not Resolved]
  - Lower urinary tract symptoms [Unknown]
  - Urinary tract infection [Recovering/Resolving]
  - Urethritis [Recovered/Resolved]

NARRATIVE: CASE EVENT DATE: 199903
